FAERS Safety Report 7931201-3 (Version None)
Quarter: 2011Q4

REPORT INFORMATION
  Report Type: 
  Country: None (occurrence: None)
  Receive Date: 20111121
  Receipt Date: 20111109
  Transmission Date: 20120403
  Serious: Yes (Other)
  Sender: FDA-Public Use
  Company Number: US-BAYER-2011-056952

PATIENT
  Age: 23 Year
  Sex: Female
  Weight: 77.098 kg

DRUGS (9)
  1. PHENERGAN [Concomitant]
     Dosage: UNK
     Route: 048
     Dates: start: 20091109
  2. IRON [Concomitant]
     Route: 048
  3. YASMIN [Suspect]
     Indication: ACNE
  4. IBUPROFEN [Concomitant]
     Route: 048
  5. YAZ [Suspect]
     Indication: ACNE
  6. YAZ [Suspect]
     Indication: CONTRACEPTION
     Dosage: UNK
     Dates: start: 20090506, end: 20090701
  7. YASMIN [Suspect]
     Indication: CONTRACEPTION
     Dosage: UNK
     Dates: start: 20060816, end: 20061101
  8. ALBUTEROL [Concomitant]
     Route: 055
  9. ALPRAZOLAM [Concomitant]
     Route: 048

REACTIONS (11)
  - DECREASED APPETITE [None]
  - DYSPNOEA [None]
  - ABDOMINAL PAIN UPPER [None]
  - DEPRESSION [None]
  - ASTHENIA [None]
  - ANXIETY [None]
  - FATIGUE [None]
  - CHOLECYSTECTOMY [None]
  - INJURY [None]
  - MENTAL DISORDER [None]
  - BILIARY DYSKINESIA [None]
